FAERS Safety Report 8762033 (Version 1)
Quarter: 2012Q4

REPORT INFORMATION
  Report Type: 
  Country: US (occurrence: US)
  Receive Date: 20120830
  Receipt Date: 20120830
  Transmission Date: 20130627
  Serious: Yes (Hospitalization, Other)
  Sender: FDA-Public Use
  Company Number: US-PFIZER INC-2012208782

PATIENT
  Age: 69 Year
  Sex: Female
  Weight: 64.85 kg

DRUGS (2)
  1. CLEOCIN [Suspect]
     Indication: BRAIN ABSCESS
     Dosage: 600 mg, every eight hours
     Route: 042
     Dates: start: 20120714, end: 201208
  2. SODIUM CHLORIDE [Suspect]
     Indication: MEDICATION DILUTION
     Dosage: UNK
     Dates: start: 201207, end: 201208

REACTIONS (4)
  - Device related infection [Recovering/Resolving]
  - Pyrexia [Recovering/Resolving]
  - Chills [Recovering/Resolving]
  - Product contamination microbial [Unknown]
